FAERS Safety Report 4413244-X (Version None)
Quarter: 2004Q3

REPORT INFORMATION
  Report Type: 
  Country: None (occurrence: None)
  Receive Date: 20040802
  Receipt Date: 20040722
  Transmission Date: 20050211
  Serious: Yes (Hospitalization, Other)
  Sender: FDA-Public Use
  Company Number: PHFR2004IE02946

PATIENT
  Age: 34 Year
  Sex: Female

DRUGS (6)
  1. CLOZARIL [Suspect]
     Indication: BORDERLINE PERSONALITY DISORDER
     Dosage: 275MG/DAY
     Route: 048
  2. PRAVASTATIN [Concomitant]
     Dosage: 40MG/DAY
     Route: 048
  3. INSULIN [Concomitant]
     Indication: DIABETES MELLITUS
  4. VENLAFAXINE HCL [Concomitant]
     Dosage: 150MG/DAY
     Route: 048
  5. LANTUS [Concomitant]
     Dosage: 40IU/DAY
     Route: 058
  6. NOVORAPID [Concomitant]
     Route: 058

REACTIONS (3)
  - CEREBROVASCULAR ACCIDENT [None]
  - CIRCULATORY COLLAPSE [None]
  - HEMIPARESIS [None]
